FAERS Safety Report 5632040-9 (Version None)
Quarter: 2008Q1

REPORT INFORMATION
  Report Type: 
  Country: None (occurrence: None)
  Receive Date: 20080220
  Receipt Date: 20080220
  Transmission Date: 20080703
  Serious: Yes (Hospitalization)
  Sender: FDA-Public Use
  Company Number: A0710721A

PATIENT
  Age: 54 Year
  Sex: Female

DRUGS (8)
  1. ALLI [Suspect]
     Indication: WEIGHT LOSS DIET
     Route: 048
     Dates: start: 20080201, end: 20080217
  2. TOFRANIL [Concomitant]
  3. PRILOSEC [Concomitant]
  4. TOPROL-XL [Concomitant]
  5. ASPIRIN [Concomitant]
  6. FISH OIL [Concomitant]
  7. PRENATAL VITAMINS [Concomitant]
  8. CRESTOR [Concomitant]
     Dates: start: 20071101

REACTIONS (13)
  - ARTERIOSCLEROSIS [None]
  - CHEST PAIN [None]
  - CORONARY ARTERY RESTENOSIS [None]
  - DIARRHOEA [None]
  - FATIGUE [None]
  - GALLBLADDER DISORDER [None]
  - HYPERHIDROSIS [None]
  - MUSCULAR WEAKNESS [None]
  - MYOCARDIAL INFARCTION [None]
  - NAUSEA [None]
  - PAIN [None]
  - PALLOR [None]
  - SYNCOPE [None]
